FAERS Safety Report 20718285 (Version 1)
Quarter: 2022Q2

REPORT INFORMATION
  Report Type: Spontaneous
  Country: US (occurrence: US)
  Receive Date: 20220418
  Receipt Date: 20220418
  Transmission Date: 20220721
  Serious: No
  Sender: FDA-Public Use
  Company Number: US-UCBSA-2021012031

PATIENT
  Age: 77 Year
  Sex: Female
  Weight: 70 kg

DRUGS (7)
  1. NEUPRO [Suspect]
     Active Substance: ROTIGOTINE
     Indication: Tremor
     Dosage: 8 MG
  2. NEUPRO [Suspect]
     Active Substance: ROTIGOTINE
     Indication: Off label use
     Dosage: 4 MILLIGRAM, ONCE DAILY (QD)
     Route: 062
  3. NEUPRO [Suspect]
     Active Substance: ROTIGOTINE
     Dosage: 6 MILLIGRAM, ONCE DAILY (QD)
     Route: 062
  4. NEUPRO [Suspect]
     Active Substance: ROTIGOTINE
     Dosage: 4 MILLIGRAM, ONCE DAILY (QD)
     Route: 062
  5. ROPINIROLE [Concomitant]
     Active Substance: ROPINIROLE
     Indication: Tremor
     Dosage: UNK
  6. LITHIUM [Concomitant]
     Active Substance: LITHIUM
     Indication: Depression
  7. ATORVASTATIN [Concomitant]
     Active Substance: ATORVASTATIN
     Indication: Depression

REACTIONS (5)
  - Tremor [Unknown]
  - Drug tolerance [Unknown]
  - Product dose omission issue [Unknown]
  - Off label use [Unknown]
  - Drug ineffective [Unknown]

NARRATIVE: CASE EVENT DATE: 20210309
